FAERS Safety Report 4543587-0 (Version None)
Quarter: 2005Q1

REPORT INFORMATION
  Report Type: 
  Country: None (occurrence: None)
  Receive Date: 20050103
  Receipt Date: 20040922
  Transmission Date: 20050727
  Serious: Yes (Other)
  Sender: FDA-Public Use
  Company Number: JP-GLAXOSMITHKLINE-B0346594A

PATIENT
  Age: 51 Year
  Sex: Male
  Weight: 51 kg

DRUGS (8)
  1. PAXIL [Suspect]
     Indication: DEPRESSION
     Route: 048
     Dates: start: 20040719, end: 20041102
  2. RISPERDAL [Suspect]
     Indication: DEPRESSION
     Dosage: 1MG THREE TIMES PER DAY
     Route: 048
     Dates: start: 20040913, end: 20041130
  3. ROHYPNOL [Concomitant]
     Route: 065
  4. ZYPREXA [Concomitant]
     Route: 048
  5. BENZALIN [Concomitant]
     Route: 048
  6. TRIPTANOL [Concomitant]
     Route: 065
  7. HALOPERIDOL [Concomitant]
     Route: 065
  8. CHLORPROMAZINE HYDROCHLORIDE [Concomitant]
     Route: 065

REACTIONS (4)
  - DELIRIUM [None]
  - DROOLING [None]
  - PERSONALITY CHANGE [None]
  - SPEECH DISORDER [None]
